FAERS Safety Report 21877083 (Version 1)
Quarter: 2023Q1

REPORT INFORMATION
  Report Type: Spontaneous
  Country: FR (occurrence: FR)
  Receive Date: 20230118
  Receipt Date: 20230118
  Transmission Date: 20230417
  Serious: Yes (Other)
  Sender: FDA-Public Use
  Company Number: FR-CELLTRION INC.-2023FR000521

PATIENT

DRUGS (6)
  1. ADALIMUMAB [Suspect]
     Active Substance: ADALIMUMAB
     Indication: Crohn^s disease
     Dosage: UNKNOWN
  2. ADALIMUMAB [Suspect]
     Active Substance: ADALIMUMAB
     Dosage: DOSAGE1: UNIT=NOT AVAILABLE
  3. INFLIXIMAB [Suspect]
     Active Substance: INFLIXIMAB
     Indication: Crohn^s disease
     Dosage: 5 MG/KG, AT WEEK 0
  4. INFLIXIMAB [Suspect]
     Active Substance: INFLIXIMAB
     Indication: Chronic recurrent multifocal osteomyelitis
     Dosage: 5 MG/KG, AT WEEK 2
  5. INFLIXIMAB [Suspect]
     Active Substance: INFLIXIMAB
     Dosage: 5 MG/KG, AT WEEK 6
  6. INFLIXIMAB [Suspect]
     Active Substance: INFLIXIMAB
     Dosage: 5 MG/KG, EVERY 8 WEEKS

REACTIONS (10)
  - Chronic recurrent multifocal osteomyelitis [Recovering/Resolving]
  - Systemic inflammatory response syndrome [Recovered/Resolved]
  - Hyperleukocytosis [Unknown]
  - Multisystem inflammatory syndrome [Recovered/Resolved]
  - Shigella infection [Recovering/Resolving]
  - Gastroenteritis shigella [Recovered/Resolved]
  - Middle insomnia [Unknown]
  - Thrombocytosis [Unknown]
  - Musculoskeletal pain [Unknown]
  - Off label use [Unknown]
